FAERS Safety Report 20508714 (Version 1)
Quarter: 2022Q1

REPORT INFORMATION
  Report Type: Report from Study
  Country: US (occurrence: US)
  Receive Date: 20220223
  Receipt Date: 20220223
  Transmission Date: 20220423
  Serious: Yes (Other)
  Sender: FDA-Public Use
  Company Number: US-CELGENE-USA-20220205258

PATIENT
  Sex: Female
  Weight: 79.450 kg

DRUGS (1)
  1. REVLIMID [Suspect]
     Active Substance: LENALIDOMIDE
     Indication: Plasma cell myeloma
     Route: 048
     Dates: start: 201802

REACTIONS (7)
  - Macular degeneration [Unknown]
  - Blindness [Unknown]
  - Cataract [Unknown]
  - Tooth disorder [Unknown]
  - Osteoarthritis [Unknown]
  - Bone disorder [Unknown]
  - Stomatitis [Unknown]
